FAERS Safety Report 6590314-1 (Version None)
Quarter: 2010Q1

REPORT INFORMATION
  Report Type: 
  Country: None (occurrence: None)
  Receive Date: 20100212
  Receipt Date: 20100205
  Transmission Date: 20100710
  Serious: Yes (Other)
  Sender: FDA-Public Use
  Company Number: TPA2010A00579

PATIENT
  Age: 77 Year
  Sex: Female

DRUGS (2)
  1. ACTOS [Suspect]
     Indication: BLOOD GLUCOSE ABNORMAL
     Dosage: 15 MG, 1 IN 1 D, PER ORAL
     Route: 048
     Dates: start: 20050413
  2. NEXIUM [Concomitant]

REACTIONS (2)
  - FALL [None]
  - HIP FRACTURE [None]
